FAERS Safety Report 8597460-1 (Version None)
Quarter: 2012Q3

REPORT INFORMATION
  Report Type: 
  Country: None (occurrence: None)
  Receive Date: 20120816
  Receipt Date: 20120807
  Transmission Date: 20120928
  Serious: Yes (Other)
  Sender: FDA-Public Use
  Company Number: US-SANOFI-AVENTIS-2012SA057479

PATIENT
  Age: 70 Year
  Sex: Female

DRUGS (6)
  1. LIPITOR [Concomitant]
     Dates: start: 20030527
  2. METFORMIN HYDROCHLORIDE [Concomitant]
     Dates: start: 20080724
  3. ALLEGRA [Concomitant]
  4. AMARYL [Suspect]
     Route: 048
     Dates: start: 19990101, end: 20110101
  5. AVANDIA [Concomitant]
     Dates: start: 20021008
  6. OLOPATADINE HCL [Concomitant]
     Route: 047
     Dates: start: 20101102

REACTIONS (4)
  - BLOOD GLUCOSE INCREASED [None]
  - SYNCOPE [None]
  - FALL [None]
  - AMNESIA [None]
